FAERS Safety Report 8957492 (Version 1)
Quarter: 2012Q4

REPORT INFORMATION
  Report Type: 
  Country: DZ (occurrence: US)
  Receive Date: 20121211
  Receipt Date: 20121211
  Transmission Date: 20130627
  Serious: No
  Sender: FDA-Public Use
  Company Number: US-ASTRAZENECA-2012SE89838

PATIENT
  Age: 88 Year
  Sex: Female
  Weight: 49.4 kg

DRUGS (2)
  1. FASLODEX [Suspect]
     Indication: BREAST CANCER FEMALE
     Route: 030
     Dates: start: 20121113
  2. THYROID MEDICATION [Concomitant]
     Indication: HYPOTHYROIDISM

REACTIONS (4)
  - Face injury [Recovered/Resolved]
  - Haemoptysis [Unknown]
  - Dizziness [Recovered/Resolved]
  - Asthenia [Recovered/Resolved]
